FAERS Safety Report 20910977 (Version 1)
Quarter: 2022Q2

REPORT INFORMATION
  Report Type: Spontaneous
  Country: JP (occurrence: JP)
  Receive Date: 20220603
  Receipt Date: 20220603
  Transmission Date: 20220721
  Serious: Yes (Death)
  Sender: FDA-Public Use
  Company Number: JP-MYLANLABS-2022M1041650

PATIENT
  Age: 63 Year
  Sex: Male

DRUGS (1)
  1. BICALUTAMIDE [Suspect]
     Active Substance: BICALUTAMIDE
     Indication: Prostate cancer metastatic
     Route: 065

REACTIONS (1)
  - Drug ineffective [Fatal]
